FAERS Safety Report 13847110 (Version 1)
Quarter: 2017Q3

REPORT INFORMATION
  Report Type: Spontaneous
  Country: JP (occurrence: JP)
  Receive Date: 20170808
  Receipt Date: 20170808
  Transmission Date: 20171127
  Serious: Yes (Other)
  Sender: FDA-Public Use
  Company Number: JP-BAUSCH-BL-2017-023426

PATIENT
  Age: 70 Year
  Sex: Male

DRUGS (6)
  1. NIFEDIPINE. [Suspect]
     Active Substance: NIFEDIPINE
     Dosage: REDUCED DOSE
     Route: 065
  2. DELAPRIL [Concomitant]
     Active Substance: DELAPRIL
     Indication: HYPERTENSION
  3. NIFEDIPINE. [Suspect]
     Active Substance: NIFEDIPINE
     Dosage: INCREASED DOSE
     Route: 065
  4. NIFEDIPINE. [Suspect]
     Active Substance: NIFEDIPINE
     Indication: HYPERTENSION
     Route: 065
  5. NICARDIPINE [Suspect]
     Active Substance: NICARDIPINE
     Indication: HYPERTENSION
     Route: 065
  6. RIFAMPICIN [Interacting]
     Active Substance: RIFAMPIN
     Indication: PULMONARY TUBERCULOSIS
     Route: 065

REACTIONS (2)
  - Drug interaction [Recovered/Resolved]
  - Hypertension [Recovering/Resolving]
